FAERS Safety Report 6833532-7 (Version None)
Quarter: 2010Q3

REPORT INFORMATION
  Report Type: 
  Country: None (occurrence: None)
  Receive Date: 20100712
  Receipt Date: 20070327
  Transmission Date: 20110219
  Serious: No
  Sender: FDA-Public Use
  Company Number: US-PFIZER INC-2007026073

PATIENT
  Sex: Female
  Weight: 110.22 kg

DRUGS (4)
  1. CHANTIX [Suspect]
     Indication: SMOKING CESSATION THERAPY
     Dates: start: 20070103
  2. ADVAIR DISKUS 100/50 [Concomitant]
  3. MONTELUKAST SODIUM [Concomitant]
  4. BYETTA [Concomitant]
     Dates: start: 20061201

REACTIONS (2)
  - DYSPNOEA [None]
  - SLEEP DISORDER [None]
